FAERS Safety Report 5194111-3 (Version None)
Quarter: 2006Q4

REPORT INFORMATION
  Report Type: 
  Country: None (occurrence: None)
  Receive Date: 20061226
  Receipt Date: 20061213
  Transmission Date: 20070319
  Serious: Yes (Hospitalization)
  Sender: FDA-Public Use
  Company Number: 2006BH015092

PATIENT
  Age: 70 Year
  Sex: Female

DRUGS (2)
  1. DOBUTAMINE HCL [Suspect]
     Indication: STRESS ECHOCARDIOGRAM
     Dosage: 30 UG/KG; /MIN;
  2. AMLODIPINE [Concomitant]

REACTIONS (4)
  - EJECTION FRACTION DECREASED [None]
  - ELECTROCARDIOGRAM ST SEGMENT ELEVATION [None]
  - LEFT VENTRICLE OUTFLOW TRACT OBSTRUCTION [None]
  - MYOCARDIAL INFARCTION [None]
